FAERS Safety Report 10895960 (Version 4)
Quarter: 2017Q2

REPORT INFORMATION
  Report Type: Spontaneous
  Country: US (occurrence: US)
  Receive Date: 20150308
  Receipt Date: 20170608
  Transmission Date: 20170829
  Serious: No
  Sender: FDA-Public Use
  Company Number: US-ASTRAZENECA-2015SE18656

PATIENT
  Age: 15751 Day
  Sex: Male
  Weight: 136.1 kg

DRUGS (1)
  1. BYDUREON [Suspect]
     Active Substance: EXENATIDE
     Route: 058
     Dates: start: 2016

REACTIONS (5)
  - Drug dose omission [Unknown]
  - Blood glucose increased [Unknown]
  - Viral upper respiratory tract infection [Unknown]
  - Intentional product use issue [Unknown]
  - Product quality issue [Unknown]

NARRATIVE: CASE EVENT DATE: 20150223
